FAERS Safety Report 7406836-7 (Version None)
Quarter: 2011Q2

REPORT INFORMATION
  Report Type: 
  Country: None (occurrence: None)
  Receive Date: 20110411
  Receipt Date: 20110405
  Transmission Date: 20111010
  Serious: Yes (Other)
  Sender: FDA-Public Use
  Company Number: NL-TEVA-274936ISR

PATIENT
  Sex: Male

DRUGS (7)
  1. GLIMEPIRIDE [Suspect]
     Indication: DIABETES MELLITUS
     Dosage: 3 MILLIGRAM;
     Route: 048
     Dates: start: 20060303
  2. PERINDOPRIL ERBUMINE [Suspect]
     Dosage: 8 MILLIGRAM;
     Route: 048
     Dates: start: 20080221
  3. AMLODIPINE [Suspect]
     Dosage: 5 MILLIGRAM;
     Route: 048
     Dates: start: 20040501
  4. HYDROCHLOROTHIAZIDE [Suspect]
     Dosage: 12.5 MILLIGRAM;
     Route: 048
     Dates: start: 20070501
  5. METFORMIN HCL [Suspect]
     Indication: DIABETES MELLITUS
     Dosage: 3000 MILLIGRAM; 3 UNIT DOSE 2 TIMES PER DAY
     Route: 048
     Dates: start: 20040701
  6. AMLODIPINE [Suspect]
     Dosage: 10 MILLIGRAM;
     Route: 048
     Dates: start: 20100101
  7. HYDROCHLOROTHIAZIDE [Suspect]
     Dosage: 25 MILLIGRAM;
     Route: 048
     Dates: start: 20001101

REACTIONS (1)
  - SKIN CANCER [None]
